FAERS Safety Report 5254775-2 (Version None)
Quarter: 2007Q1

REPORT INFORMATION
  Report Type: 
  Country: None (occurrence: None)
  Receive Date: 20070305
  Receipt Date: 20070305
  Transmission Date: 20070707
  Serious: Yes (Hospitalization)
  Sender: FDA-Public Use
  Company Number: None

PATIENT
  Sex: Male

DRUGS (1)
  1. GMCSF [Suspect]
     Indication: PROSTATE CANCER
     Dosage: 250MG/M2  QD X14  SQ
     Dates: start: 20061108, end: 20070228

REACTIONS (3)
  - DISEASE PROGRESSION [None]
  - MUSCULAR WEAKNESS [None]
  - OEDEMA PERIPHERAL [None]
